FAERS Safety Report 6765210-7 (Version None)
Quarter: 2010Q2

REPORT INFORMATION
  Report Type: 
  Country: None (occurrence: None)
  Receive Date: 20100610
  Receipt Date: 20100610
  Transmission Date: 20101027
  Serious: No
  Sender: FDA-Public Use
  Company Number: None

PATIENT
  Age: 53 Year
  Sex: Male
  Weight: 77.1115 kg

DRUGS (1)
  1. CIPROFLOXACIN [Suspect]
     Indication: URINARY TRACT INFECTION
     Dosage: TWICE A DAY PO
     Route: 048
     Dates: start: 20090424, end: 20090501

REACTIONS (2)
  - GAIT DISTURBANCE [None]
  - TREMOR [None]
